FAERS Safety Report 21361781 (Version 1)
Quarter: 2022Q3

REPORT INFORMATION
  Report Type: Spontaneous
  Country: US (occurrence: None)
  Receive Date: 20220921
  Receipt Date: 20220921
  Transmission Date: 20221027
  Serious: Yes (Hospitalization, Disabling)
  Sender: FDA-Public Use
  Company Number: None

PATIENT
  Sex: Female
  Weight: 59 kg

DRUGS (1)
  1. EPCLUSA [Suspect]
     Active Substance: SOFOSBUVIR\VELPATASVIR
     Indication: Hepatitis C
     Dosage: OTHER STRENGTH : 400/100;?FREQUENCY : DAILY;?
     Route: 048
     Dates: start: 20220803

REACTIONS (3)
  - Drug hypersensitivity [None]
  - Tremor [None]
  - Therapy cessation [None]
